FAERS Safety Report 9419915 (Version 1)
Quarter: 2013Q3

REPORT INFORMATION
  Report Type: Spontaneous
  Country: US (occurrence: US)
  Receive Date: 20130725
  Receipt Date: 20130725
  Transmission Date: 20140515
  Serious: No
  Sender: FDA-Public Use
  Company Number: US-US-EMD SERONO, INC.-7164838

PATIENT
  Sex: Female

DRUGS (1)
  1. REBIF [Suspect]
     Indication: PRODUCT USED FOR UNKNOWN INDICATION
     Route: 058
     Dates: start: 20120910

REACTIONS (5)
  - Dyspnoea [Recovered/Resolved]
  - Eye pain [Unknown]
  - Feeling abnormal [Unknown]
  - Headache [Unknown]
  - Influenza like illness [Unknown]
